FAERS Safety Report 10766729 (Version 1)
Quarter: 2015Q1

REPORT INFORMATION
  Report Type: Spontaneous
  Country: CG (occurrence: CG)
  Receive Date: 20150205
  Receipt Date: 20150205
  Transmission Date: 20150721
  Serious: Yes (Hospitalization)
  Sender: FDA-Public Use
  Company Number: CG-009507513-1501COG010705

PATIENT
  Age: 20 Year
  Sex: Female

DRUGS (1)
  1. IVERMECTIN. [Suspect]
     Active Substance: IVERMECTIN
     Indication: ONCHOCERCIASIS
     Dosage: 4 DF, UNK
     Route: 048
     Dates: start: 20141021

REACTIONS (8)
  - Depressed level of consciousness [Recovered/Resolved]
  - Dysstasia [Recovered/Resolved]
  - Agitation [Recovered/Resolved]
  - Logorrhoea [Recovered/Resolved]
  - Coma scale abnormal [Recovered/Resolved]
  - Nervous system disorder [Recovered/Resolved]
  - Blood pressure abnormal [Recovered/Resolved]
  - Body temperature abnormal [Recovered/Resolved]

NARRATIVE: CASE EVENT DATE: 20141023
